FAERS Safety Report 5719795-X (Version None)
Quarter: 2008Q2

REPORT INFORMATION
  Report Type: 
  Country: None (occurrence: None)
  Receive Date: 20080425
  Receipt Date: 20080425
  Transmission Date: 20081010
  Serious: Yes (Death)
  Sender: FDA-Public Use
  Company Number: None

PATIENT
  Sex: Female
  Weight: 41 kg

DRUGS (1)
  1. RITUXIMAB 375MG/M2 [Suspect]
     Indication: CENTRAL NERVOUS SYSTEM LYMPHOMA
     Dosage: 500MG 1X/WEEKFOR6WEEKS IV
     Route: 042
     Dates: start: 20080125, end: 20080318

REACTIONS (15)
  - BEDRIDDEN [None]
  - CLOSTRIDIUM DIFFICILE COLITIS [None]
  - COAGULOPATHY [None]
  - DEHYDRATION [None]
  - DEPRESSED LEVEL OF CONSCIOUSNESS [None]
  - DYSPNOEA [None]
  - FAILURE TO THRIVE [None]
  - LUNG INFILTRATION [None]
  - MALNUTRITION [None]
  - MENTAL STATUS CHANGES [None]
  - ORAL INTAKE REDUCED [None]
  - PERFORMANCE STATUS DECREASED [None]
  - SEPSIS [None]
  - UNRESPONSIVE TO STIMULI [None]
  - WHEELCHAIR USER [None]
